FAERS Safety Report 13129875 (Version 1)
Quarter: 2017Q1

REPORT INFORMATION
  Report Type: Spontaneous
  Country: US (occurrence: US)
  Receive Date: 20170118
  Receipt Date: 20170118
  Transmission Date: 20170428
  Serious: Yes (Death, Hospitalization)
  Sender: FDA-Public Use
  Company Number: None

PATIENT
  Age: 70 Year
  Sex: Female
  Weight: 91.7 kg

DRUGS (4)
  1. DEXAMETHASONE. [Suspect]
     Active Substance: DEXAMETHASONE
     Dates: end: 20161221
  2. VELCADE [Suspect]
     Active Substance: BORTEZOMIB
     Dates: end: 20161220
  3. VANCOMYCIN [Concomitant]
     Active Substance: VANCOMYCIN
  4. LENALIDOMIDE (CC-5013) [Suspect]
     Active Substance: LENALIDOMIDE
     Dates: end: 20161226

REACTIONS (8)
  - Atrial fibrillation [None]
  - Hypotension [None]
  - Small intestinal obstruction [None]
  - Renal tubular necrosis [None]
  - Sepsis [None]
  - Pneumonia [None]
  - Acute kidney injury [None]
  - Toxicity to various agents [None]

NARRATIVE: CASE EVENT DATE: 20161231
